FAERS Safety Report 7815658-4 (Version None)
Quarter: 2011Q4

REPORT INFORMATION
  Report Type: 
  Country: None (occurrence: None)
  Receive Date: 20111014
  Receipt Date: 20111004
  Transmission Date: 20120403
  Serious: Yes (Hospitalization)
  Sender: FDA-Public Use
  Company Number: IT-NOVOPROD-334414

PATIENT

DRUGS (2)
  1. ZUGLIMET [Concomitant]
     Dosage: 1500 MG, QD
     Route: 048
     Dates: start: 20090101
  2. VICTOZA [Suspect]
     Indication: TYPE 2 DIABETES MELLITUS
     Dosage: 1.2 MG, QD
     Route: 058
     Dates: start: 20110312, end: 20110505

REACTIONS (1)
  - DIARRHOEA HAEMORRHAGIC [None]
